FAERS Safety Report 4365550-5 (Version None)
Quarter: 2004Q2

REPORT INFORMATION
  Report Type: 
  Country: None (occurrence: None)
  Receive Date: 20040526
  Receipt Date: 20040525
  Transmission Date: 20050107
  Serious: Yes (Life-Threatening, Hospitalization)
  Sender: FDA-Public Use
  Company Number: 2004009477

PATIENT
  Age: 26 Year
  Sex: Male
  Weight: 85 kg

DRUGS (2)
  1. QUILONUM RETARD [Suspect]
     Dosage: 20TAB SINGLE DOSE
     Route: 048
     Dates: start: 20040524, end: 20040524
  2. TRIMIPRAMINE [Concomitant]
     Dosage: 20TAB SINGLE DOSE
     Route: 048
     Dates: start: 20040524, end: 20040524

REACTIONS (3)
  - INTENTIONAL OVERDOSE [None]
  - SOMNOLENCE [None]
  - SUICIDE ATTEMPT [None]
